FAERS Safety Report 5138188-X (Version None)
Quarter: 2006Q4

REPORT INFORMATION
  Report Type: 
  Country: None (occurrence: None)
  Receive Date: 20061030
  Receipt Date: 20060720
  Transmission Date: 20070319
  Serious: No
  Sender: FDA-Public Use
  Company Number: US-GLAXOSMITHKLINE-A0612990A

PATIENT
  Age: 88 Year
  Sex: Male

DRUGS (5)
  1. ADVAIR HFA [Suspect]
     Dosage: 1PUFF PER DAY
     Route: 055
     Dates: start: 20060501
  2. NORVASC [Concomitant]
     Dosage: 5MG PER DAY
     Dates: start: 20060717
  3. AMBIEN [Concomitant]
  4. ASPIRIN [Concomitant]
  5. AVAPRO [Concomitant]

REACTIONS (1)
  - HAEMORRHAGE SUBCUTANEOUS [None]
